FAERS Safety Report 11685657 (Version 4)
Quarter: 2017Q1

REPORT INFORMATION
  Report Type: Spontaneous
  Country: JP (occurrence: JP)
  Receive Date: 20151030
  Receipt Date: 20170216
  Transmission Date: 20170428
  Serious: Yes (Hospitalization, Other)
  Sender: FDA-Public Use
  Company Number: JP-BRISTOL-MYERS SQUIBB COMPANY-BMS-2015-074193

PATIENT
  Age: 91 Year
  Sex: Female
  Weight: 43 kg

DRUGS (7)
  1. FUROSEMIDE. [Concomitant]
     Active Substance: FUROSEMIDE
     Indication: CARDIAC FAILURE
     Dosage: 20 MG, QD
     Route: 065
     Dates: start: 20150630
  2. DILAZEP HYDROCHLORIDE [Concomitant]
     Active Substance: DILAZEP DIHYDROCHLORIDE
     Indication: ANGINA PECTORIS
     Dosage: 100 MG, QD
     Route: 065
     Dates: end: 20150630
  3. ELIQUIS [Suspect]
     Active Substance: APIXABAN
     Indication: CEREBROVASCULAR ACCIDENT PROPHYLAXIS
     Dosage: 2.5 MG, BID
     Route: 048
     Dates: start: 20150623, end: 20150629
  4. FAMOTIDINE. [Concomitant]
     Active Substance: FAMOTIDINE
     Indication: GASTROOESOPHAGEAL REFLUX DISEASE
     Dosage: 20 MG, QD
     Route: 065
     Dates: start: 20040917
  5. REBAMIPIDE [Concomitant]
     Active Substance: REBAMIPIDE
     Indication: GASTRITIS
     Dosage: 100 MG, TID
     Route: 065
     Dates: start: 20040607
  6. ARICEPT [Concomitant]
     Active Substance: DONEPEZIL HYDROCHLORIDE
     Indication: DEMENTIA
     Dosage: 5 MG, QD
     Route: 065
     Dates: start: 20070928
  7. URITOS [Concomitant]
     Active Substance: IMIDAFENACIN
     Indication: HYPERTONIC BLADDER
     Dosage: 0.1 MG, QD
     Route: 065
     Dates: start: 20050509

REACTIONS (2)
  - Spinal epidural haematoma [Recovered/Resolved with Sequelae]
  - Surgery [Unknown]

NARRATIVE: CASE EVENT DATE: 20150629
